FAERS Safety Report 14973637 (Version 1)
Quarter: 2018Q2

REPORT INFORMATION
  Report Type: Spontaneous
  Country: US (occurrence: US)
  Receive Date: 20180605
  Receipt Date: 20180605
  Transmission Date: 20180711
  Serious: No
  Sender: FDA-Public Use
  Company Number: US-009507513-1805USA009255

PATIENT
  Age: 65 Year
  Sex: Male

DRUGS (4)
  1. ASPIRIN. [Concomitant]
     Active Substance: ASPIRIN
  2. REMERON [Suspect]
     Active Substance: MIRTAZAPINE
     Indication: PANIC ATTACK
     Dosage: STRENGTH: 30 (UNITS NOT PROVIDED)
     Route: 048
     Dates: start: 20180512
  3. CARVEDILOL. [Concomitant]
     Active Substance: CARVEDILOL
  4. REMERON [Suspect]
     Active Substance: MIRTAZAPINE
     Indication: PANIC ATTACK
     Dosage: STRENGTH: 30 (UNITS NOT PROVIDED)
     Route: 048

REACTIONS (3)
  - Product use in unapproved indication [Unknown]
  - Panic attack [Not Recovered/Not Resolved]
  - Insomnia [Not Recovered/Not Resolved]

NARRATIVE: CASE EVENT DATE: 20180512
